FAERS Safety Report 5786947-2 (Version None)
Quarter: 2008Q2

REPORT INFORMATION
  Report Type: 
  Country: None (occurrence: None)
  Receive Date: 20080623
  Receipt Date: 20080623
  Transmission Date: 20081010
  Serious: Yes (Hospitalization)
  Sender: FDA-Public Use
  Company Number: None

PATIENT
  Age: 73 Year
  Sex: Male
  Weight: 72.5755 kg

DRUGS (2)
  1. DOXYCYCLINE [Suspect]
     Indication: LUNG INFECTION
     Dosage: 100MG BID PO
     Route: 048
     Dates: start: 20080617
  2. ERBITUX [Suspect]
     Indication: COLON CANCER
     Dosage: Q14 DAYS IV
     Route: 042
     Dates: start: 20080610

REACTIONS (3)
  - ERYTHEMA [None]
  - SKIN CHAPPED [None]
  - SWELLING [None]
